FAERS Safety Report 7250148-1 (Version None)
Quarter: 2011Q1

REPORT INFORMATION
  Report Type: 
  Country: None (occurrence: None)
  Receive Date: 20110128
  Receipt Date: 20101217
  Transmission Date: 20110831
  Serious: Yes (Hospitalization, Other)
  Sender: FDA-Public Use
  Company Number: US-BAYER-201032082NA

PATIENT
  Sex: Female

DRUGS (10)
  1. BENICAR [Concomitant]
  2. SEROQUEL [Concomitant]
  3. MOBIC [Concomitant]
  4. PROZAC [Concomitant]
  5. SIMVASTATIN [Concomitant]
  6. ALLEGRA [Concomitant]
  7. AMBIEN [Concomitant]
  8. YASMIN [Suspect]
     Indication: PRODUCT USED FOR UNKNOWN INDICATION
     Dates: start: 20000101
  9. WELLBUTRIN [Concomitant]
  10. NORCO [Concomitant]
     Indication: PAIN

REACTIONS (6)
  - PANCREATITIS [None]
  - CHOLELITHIASIS [None]
  - NAUSEA [None]
  - PULMONARY EMBOLISM [None]
  - CHOLECYSTITIS [None]
  - ABDOMINAL PAIN UPPER [None]
